FAERS Safety Report 5039437-9 (Version None)
Quarter: 2006Q2

REPORT INFORMATION
  Report Type: 
  Country: None (occurrence: None)
  Receive Date: 20060629
  Receipt Date: 20060619
  Transmission Date: 20061013
  Serious: Yes (Death, Hospitalization)
  Sender: FDA-Public Use
  Company Number: FR-BRISTOL-MYERS SQUIBB COMPANY-13418173

PATIENT
  Age: 49 Year
  Sex: Female
  Weight: 96 kg

DRUGS (7)
  1. ETOPOPHOS [Suspect]
     Route: 042
     Dates: start: 20060429, end: 20060505
  2. ENDOXAN [Suspect]
     Route: 042
     Dates: start: 20060119, end: 20060328
  3. ARACYTINE [Suspect]
     Route: 042
     Dates: start: 20060118, end: 20060503
  4. METHOTREXATE [Suspect]
     Route: 042
     Dates: start: 20060118, end: 20060428
  5. DOXORUBICIN HCL [Suspect]
     Route: 042
     Dates: start: 20060119, end: 20060328
  6. VINCRISTINE [Suspect]
     Route: 042
     Dates: start: 20060119, end: 20060328
  7. MABTHERA [Suspect]
     Route: 042
     Dates: start: 20060119, end: 20060428

REACTIONS (2)
  - BONE MARROW FAILURE [None]
  - CEREBRAL HAEMORRHAGE [None]
